FAERS Safety Report 8461305-0 (Version None)
Quarter: 2012Q2

REPORT INFORMATION
  Report Type: 
  Country: None (occurrence: None)
  Receive Date: 20120323
  Receipt Date: 20110913
  Transmission Date: 20120825
  Serious: Yes (Hospitalization)
  Sender: FDA-Public Use
  Company Number: 163-21880-11091490

PATIENT
  Age: 63 Year
  Sex: Male
  Weight: 99.3377 kg

DRUGS (6)
  1. COUMADIN [Concomitant]
  2. METOPROLOL TARTRATE [Concomitant]
  3. ALTACE [Concomitant]
  4. SIMVASTATIN [Concomitant]
  5. ASPIRIN [Concomitant]
  6. REVLIMID [Suspect]
     Indication: MULTIPLE MYELOMA
     Dosage: 25 MG, DAILY FOR 21 DAYS, PO
     Route: 048
     Dates: start: 20110726

REACTIONS (1)
  - PULMONARY EMBOLISM [None]
